FAERS Safety Report 17236544 (Version 2)
Quarter: 2020Q1

REPORT INFORMATION
  Report Type: Spontaneous
  Country: US (occurrence: US)
  Receive Date: 20200106
  Receipt Date: 20200121
  Transmission Date: 20200409
  Serious: No
  Sender: FDA-Public Use
  Company Number: US-VERTEX PHARMACEUTICALS-2019-013856

PATIENT
  Sex: Female
  Weight: 48 kg

DRUGS (30)
  1. ACETAMINOPHEN. [Concomitant]
     Active Substance: ACETAMINOPHEN
     Dosage: 1000 MG, EVERY 6 HOURS
  2. GLUCAGON. [Concomitant]
     Active Substance: GLUCAGON
     Dosage: 1 MG, AS NEEDED
     Route: 030
  3. LANTUS [Concomitant]
     Active Substance: INSULIN GLARGINE
     Dosage: 4 UNITS, UNDER SKIN DAILY
  4. MIRALAX [Concomitant]
     Active Substance: POLYETHYLENE GLYCOL 3350
     Dosage: 1 DOSAGE FORM, QD
  5. VENTOLIN HFA [Concomitant]
     Active Substance: ALBUTEROL SULFATE
     Dosage: 2 PUFFS, EVERY 4 HOURS
  6. ACTIGALL [Concomitant]
     Active Substance: URSODIOL
     Dosage: 1 DOSAGE FORM, BID
  7. DEPO-PROVERA [Concomitant]
     Active Substance: MEDROXYPROGESTERONE ACETATE
     Dosage: 1 MILLILITER, EVERY 3 MONTHS
  8. CETRIZINE [Concomitant]
     Active Substance: CETIRIZINE HYDROCHLORIDE
     Dosage: 1 DOSAGE FORM, QD
  9. LIORESAL [Concomitant]
     Active Substance: BACLOFEN
     Dosage: 1 DOSAGE FORM, TID
  10. GABAPENTIN. [Concomitant]
     Active Substance: GABAPENTIN
     Dosage: 3 DOSAGE FORM, TID
  11. MUCINEX [Concomitant]
     Active Substance: GUAIFENESIN
     Dosage: 1 DOSAGE FORM, BID
  12. IBUPROFEN. [Concomitant]
     Active Substance: IBUPROFEN
     Dosage: 600 MG, AS NEEDED
  13. XOLAIR [Concomitant]
     Active Substance: OMALIZUMAB
     Dosage: 375 MG, EVERY 2 WEEKS
     Route: 058
     Dates: start: 20190827
  14. COMBIVENT RESPIMAT [Concomitant]
     Active Substance: ALBUTEROL SULFATE\IPRATROPIUM BROMIDE
     Dosage: 1 PUFF, 4 TIMES DAILY
  15. ZANTAC [Concomitant]
     Active Substance: RANITIDINE HYDROCHLORIDE
     Dosage: 1 DOSAGE FORM, BID
  16. TOBRAMYCIN. [Concomitant]
     Active Substance: TOBRAMYCIN
     Dosage: 300 MG, BID
  17. EPIPEN [Concomitant]
     Active Substance: EPINEPHRINE
     Dosage: 0.3 MG AS NEEDED
     Route: 030
  18. SINGULAIR [Concomitant]
     Active Substance: MONTELUKAST SODIUM
     Dosage: 1 DOSAGE FORM, BID
  19. ACIPHEX [Concomitant]
     Active Substance: RABEPRAZOLE SODIUM
     Dosage: 1 DOSAGE FORM, QD
  20. XOLAIR [Concomitant]
     Active Substance: OMALIZUMAB
     Dosage: 375 MG, EVERY 2 WEEKS
     Route: 058
     Dates: start: 20190423
  21. ERGOCALCIFEROL. [Concomitant]
     Active Substance: ERGOCALCIFEROL
     Dosage: 50000 UNIT, 1 CAPSULE, ONCE A WEEK
  22. HUMALOG [Concomitant]
     Active Substance: INSULIN LISPRO
     Dosage: 100 UNIT/ ML
     Route: 058
  23. XOLAIR [Concomitant]
     Active Substance: OMALIZUMAB
     Dosage: 375 MG, EVERY 2 WEEKS
     Route: 058
     Dates: start: 20190813
  24. SYMDEKO [Suspect]
     Active Substance: IVACAFTOR\TEZACAFTOR
     Indication: CYSTIC FIBROSIS
     Dosage: 100MG TEZACAFTOR/150MG IVACAFTOR AM; 150MG IVACAFTOR PM
     Route: 048
     Dates: start: 20190501
  25. ZENPEP [Concomitant]
     Active Substance: PANCRELIPASE AMYLASE\PANCRELIPASE LIPASE\PANCRELIPASE PROTEASE
     Dosage: 1 DOSAGE FORM, TID
  26. PULMOZYME [Concomitant]
     Active Substance: DORNASE ALFA
     Dosage: 1 VIAL, TWICE DAILY
  27. XOLAIR [Concomitant]
     Active Substance: OMALIZUMAB
     Dosage: 375 MG, EVERY 2 WEEKS
     Route: 058
     Dates: start: 20190515
  28. PROVENTIL [Concomitant]
     Active Substance: ALBUTEROL
     Dosage: 1 VIAL, EVERY 4 HOURS
  29. LEVOTHYROXINE. [Concomitant]
     Active Substance: LEVOTHYROXINE
     Dosage: 1 DOSAGE FORM, QD
  30. DULERA [Concomitant]
     Active Substance: FORMOTEROL FUMARATE DIHYDRATE\MOMETASONE FUROATE
     Dosage: 2 PUFFS, TWICE, DAILY

REACTIONS (3)
  - Blood glucose increased [Recovered/Resolved]
  - Gastroenteritis viral [Recovering/Resolving]
  - Infective pulmonary exacerbation of cystic fibrosis [Unknown]

NARRATIVE: CASE EVENT DATE: 2019
